FAERS Safety Report 15075453 (Version 1)
Quarter: 2018Q2

REPORT INFORMATION
  Report Type: Report from Study
  Country: US (occurrence: US)
  Receive Date: 20180627
  Receipt Date: 20180627
  Transmission Date: 20180711
  Serious: Yes (Other)
  Sender: FDA-Public Use
  Company Number: US-SAOL THERAPEUTICS-2017SAO01593

PATIENT
  Age: 44 Year
  Sex: Male

DRUGS (44)
  1. COMPOUNDED BACLOFEN [Suspect]
     Active Substance: BACLOFEN
     Dosage: 6.201 ?G, \DAY
     Route: 037
     Dates: start: 20171004, end: 20171005
  2. BUPIVACAINE. [Suspect]
     Active Substance: BUPIVACAINE
     Dosage: 12.681 MG, \DAY; MAX DOSE
     Route: 037
     Dates: start: 20171004, end: 20171005
  3. DILAUDID [Suspect]
     Active Substance: HYDROMORPHONE HYDROCHLORIDE
     Dosage: 1.864 MG, \DAY; MAX DOSE
     Route: 037
     Dates: start: 20171114
  4. COMPOUNDED BACLOFEN [Suspect]
     Active Substance: BACLOFEN
     Dosage: 11.834 ?G, \DAY; MAX DOSE
     Route: 037
     Dates: start: 20171005, end: 20171009
  5. BUPIVACAINE. [Suspect]
     Active Substance: BUPIVACAINE
     Dosage: 15.461 MG, \DAY; MAX DOSE
     Route: 037
     Dates: start: 20171005, end: 20171009
  6. CLONIDINE. [Suspect]
     Active Substance: CLONIDINE
     Dosage: 11.742 ?G, \DAY; MAX DOSE
     Route: 037
     Dates: start: 20171004, end: 20171005
  7. CLONIDINE. [Suspect]
     Active Substance: CLONIDINE
     Dosage: 22.275 ?G, \DAY; MAX DOSE
     Route: 037
     Dates: start: 20171011
  8. COMPOUNDED BACLOFEN [Suspect]
     Active Substance: BACLOFEN
     Dosage: 7.441 ?G, \DAY
     Route: 037
     Dates: start: 20171005, end: 20171009
  9. COMPOUNDED BACLOFEN [Suspect]
     Active Substance: BACLOFEN
     Dosage: 14.498 ?G, \DAY; MAX DOSE
     Route: 037
     Dates: start: 20171009
  10. DILAUDID [Suspect]
     Active Substance: HYDROMORPHONE HYDROCHLORIDE
     Dosage: 0.600 MG, \DAY
     Route: 037
     Dates: start: 20171005, end: 20171009
  11. DILAUDID [Suspect]
     Active Substance: HYDROMORPHONE HYDROCHLORIDE
     Dosage: 0.954 MG, \DAY; MAX DOSE
     Route: 037
     Dates: start: 20171005, end: 20171009
  12. CLONIDINE. [Suspect]
     Active Substance: CLONIDINE
     Dosage: 15.003 ?G, \DAY
     Route: 037
     Dates: start: 20171009
  13. CLONIDINE. [Suspect]
     Active Substance: CLONIDINE
     Dosage: 18.779 ?G, \DAY
     Route: 037
     Dates: start: 20171011
  14. COMPOUNDED BACLOFEN [Suspect]
     Active Substance: BACLOFEN
     Dosage: 15.524 ?G, \DAY
     Route: 037
     Dates: start: 20171011
  15. DILAUDID [Suspect]
     Active Substance: HYDROMORPHONE HYDROCHLORIDE
     Dosage: 1.000 MG, \DAY
     Route: 037
     Dates: start: 20171009
  16. DILAUDID [Suspect]
     Active Substance: HYDROMORPHONE HYDROCHLORIDE
     Dosage: 1.485 MG, \DAY; MAX DOSE
     Route: 037
     Dates: start: 20171011
  17. CLONIDINE. [Suspect]
     Active Substance: CLONIDINE
     Dosage: 14.316 ?G, \DAY; MAX DOSE
     Route: 037
     Dates: start: 20171005, end: 20171009
  18. COMPOUNDED BACLOFEN [Suspect]
     Active Substance: BACLOFEN
     Dosage: 9.707 ?G, \DAY; MAX DOSE
     Route: 037
     Dates: start: 20171004, end: 20171005
  19. COMPOUNDED BACLOFEN [Suspect]
     Active Substance: BACLOFEN
     Dosage: 12.403 ?G, \DAY
     Route: 037
     Dates: start: 20171009
  20. DILAUDID [Suspect]
     Active Substance: HYDROMORPHONE HYDROCHLORIDE
     Dosage: 0.500 MG, \DAY
     Route: 037
     Dates: start: 20171004, end: 20171005
  21. DILAUDID [Suspect]
     Active Substance: HYDROMORPHONE HYDROCHLORIDE
     Dosage: 1.169 MG, \DAY; MAX DOSE
     Route: 037
     Dates: start: 20171009
  22. BUPIVACAINE. [Suspect]
     Active Substance: BUPIVACAINE
     Dosage: 8.102 MG, \DAY
     Route: 037
     Dates: start: 20171004, end: 20171005
  23. BUPIVACAINE. [Suspect]
     Active Substance: BUPIVACAINE
     Dosage: 20.281 MG, \DAY
     Route: 037
     Dates: start: 20171011
  24. COMPOUNDED BACLOFEN [Suspect]
     Active Substance: BACLOFEN
     Dosage: 149.14 ?G, \DAY; MAX DOSE
     Route: 037
     Dates: start: 20171114
  25. CLONIDINE. [Suspect]
     Active Substance: CLONIDINE
     Dosage: 90.02 ?G, \DAY
     Route: 037
     Dates: start: 20171114
  26. COMPOUNDED BACLOFEN [Suspect]
     Active Substance: BACLOFEN
     Dosage: 15.115 ?G, \DAY; MAX DOSE
     Route: 037
     Dates: start: 20171009
  27. BUPIVACAINE. [Suspect]
     Active Substance: BUPIVACAINE
     Dosage: 19.747 MG, \DAY; MAX DOSE
     Route: 037
     Dates: start: 20171009
  28. CLONIDINE. [Suspect]
     Active Substance: CLONIDINE
     Dosage: 9.002 ?G, \DAY
     Route: 037
     Dates: start: 20171005, end: 20171009
  29. CLONIDINE. [Suspect]
     Active Substance: CLONIDINE
     Dosage: 18.285 ?G, \DAY; MAX DOSE
     Route: 037
     Dates: start: 20171009
  30. DILAUDID [Suspect]
     Active Substance: HYDROMORPHONE HYDROCHLORIDE
     Dosage: 1.500 MG, \DAY
     Route: 037
     Dates: start: 20171114
  31. COMPOUNDED BACLOFEN [Suspect]
     Active Substance: BACLOFEN
     Dosage: 120.03 ?G, \DAY
     Route: 037
     Dates: start: 20171114
  32. BUPIVACAINE. [Suspect]
     Active Substance: BUPIVACAINE
     Dosage: 9.722 MG, \DAY
     Route: 037
     Dates: start: 20171005, end: 20171009
  33. BUPIVACAINE. [Suspect]
     Active Substance: BUPIVACAINE
     Dosage: 16.204 MG, \DAY
     Route: 037
     Dates: start: 20171009
  34. BUPIVACAINE. [Suspect]
     Active Substance: BUPIVACAINE
     Dosage: 18.004 MG, \DAY
     Route: 037
     Dates: start: 20171114
  35. BUPIVACAINE. [Suspect]
     Active Substance: BUPIVACAINE
     Dosage: 22.371 MG, \DAY; MAX DOSE
     Route: 037
     Dates: start: 20171114
  36. COMPOUNDED BACLOFEN [Suspect]
     Active Substance: BACLOFEN
     Dosage: 18.414 ?G, \DAY; MAX DOSE
     Route: 037
     Dates: start: 20171011
  37. DILAUDID [Suspect]
     Active Substance: HYDROMORPHONE HYDROCHLORIDE
     Dosage: 0.782 MG, \DAY; MAX DOSE
     Route: 037
     Dates: start: 20171004, end: 20171005
  38. DILAUDID [Suspect]
     Active Substance: HYDROMORPHONE HYDROCHLORIDE
     Dosage: 1.219 MG, \DAY; MAX DOSE
     Route: 037
     Dates: start: 20171009
  39. DILAUDID [Suspect]
     Active Substance: HYDROMORPHONE HYDROCHLORIDE
     Dosage: 1.251 MG, \DAY
     Route: 037
     Dates: start: 20171011
  40. BUPIVACAINE. [Suspect]
     Active Substance: BUPIVACAINE
     Dosage: 18.941 MG, \DAY; MAX DOSE
     Route: 037
     Dates: start: 20171009
  41. BUPIVACAINE. [Suspect]
     Active Substance: BUPIVACAINE
     Dosage: 24.058 MG, \DAY; MAX DOSE
     Route: 037
     Dates: start: 20171011
  42. CLONIDINE. [Suspect]
     Active Substance: CLONIDINE
     Dosage: 7.501 ?G, \DAY
     Route: 037
     Dates: start: 20171004, end: 20171005
  43. CLONIDINE. [Suspect]
     Active Substance: CLONIDINE
     Dosage: 17.538 ?G, \DAY; MAX DOSE
     Route: 037
     Dates: start: 20171009
  44. CLONIDINE. [Suspect]
     Active Substance: CLONIDINE
     Dosage: 111.85 ?G, \DAY; MAX DOSE
     Route: 037
     Dates: start: 20171114

REACTIONS (9)
  - Drug withdrawal syndrome [Recovered/Resolved]
  - Dyspnoea [Recovered/Resolved]
  - Procedural headache [Recovered/Resolved]
  - Implant site pain [Recovered/Resolved]
  - Dizziness [Recovered/Resolved]
  - Feeling abnormal [Recovered/Resolved]
  - Hyperhidrosis [Recovered/Resolved]
  - Device occlusion [Recovered/Resolved]
  - Medical device site discomfort [Recovered/Resolved]

NARRATIVE: CASE EVENT DATE: 20171006
